FAERS Safety Report 22300569 (Version 1)
Quarter: 2023Q2

REPORT INFORMATION
  Report Type: Spontaneous
  Country: US (occurrence: US)
  Receive Date: 20230509
  Receipt Date: 20230509
  Transmission Date: 20230722
  Serious: No
  Sender: FDA-Public Use
  Company Number: US-BAUSCH-BL-2023-006722

PATIENT
  Age: 39 Year
  Sex: Male

DRUGS (1)
  1. ARAZLO [Suspect]
     Active Substance: TAZAROTENE
     Indication: Acne
     Dosage: PINKY SIZE AMOUNT ON HIS FOREHEAD
     Route: 065
     Dates: start: 20230425, end: 20230425

REACTIONS (3)
  - Application site irritation [Not Recovered/Not Resolved]
  - Application site erythema [Not Recovered/Not Resolved]
  - Application site exfoliation [Not Recovered/Not Resolved]

NARRATIVE: CASE EVENT DATE: 20230426
